FAERS Safety Report 7361873-6 (Version None)
Quarter: 2011Q1

REPORT INFORMATION
  Report Type: 
  Country: None (occurrence: None)
  Receive Date: 20110318
  Receipt Date: 20110314
  Transmission Date: 20110831
  Serious: Yes (Death)
  Sender: FDA-Public Use
  Company Number: US-AMGEN-USASP2011014138

PATIENT
  Age: 76 Year
  Sex: Male

DRUGS (2)
  1. NPLATE [Suspect]
     Indication: IDIOPATHIC THROMBOCYTOPENIC PURPURA
     Dosage: 63 A?G, UNK
     Dates: start: 20100927, end: 20100927
  2. CORTICOSTEROIDS [Concomitant]

REACTIONS (1)
  - DEATH [None]
